FAERS Safety Report 23906457 (Version 3)
Quarter: 2025Q4

REPORT INFORMATION
  Report Type: Spontaneous
  Country: JP (occurrence: JP)
  Receive Date: 20240528
  Receipt Date: 20251226
  Transmission Date: 20260118
  Serious: Yes (Hospitalization, Other)
  Sender: IPCA
  Company Number: JP-IPCA LABORATORIES LIMITED-IPC-2024-JP-001223

PATIENT

DRUGS (2)
  1. TRAMADOL [Suspect]
     Active Substance: TRAMADOL
     Indication: Back pain
     Dosage: 1575 MILLIGRAM
     Route: 065
  2. ACETAMINOPHEN [Concomitant]
     Active Substance: ACETAMINOPHEN
     Indication: Product used for unknown indication
     Dosage: 13650 MILLIGRAM
     Route: 065

REACTIONS (4)
  - CHANTER syndrome [Recovered/Resolved]
  - Leukoencephalopathy [Recovered/Resolved]
  - Toxicity to various agents [Recovered/Resolved]
  - Overdose [Unknown]
